FAERS Safety Report 4290128-1 (Version None)
Quarter: 2004Q1

REPORT INFORMATION
  Report Type: 
  Country: None (occurrence: None)
  Receive Date: 20040209
  Receipt Date: 20040127
  Transmission Date: 20041129
  Serious: Yes (Death, Hospitalization)
  Sender: FDA-Public Use
  Company Number: DE-JNJFOC-20031204922

PATIENT
  Age: 66 Year
  Sex: Male
  Weight: 94 kg

DRUGS (5)
  1. TOPIRAMATE [Suspect]
     Indication: EPILEPSY
     Dosage: 400 MG, ORAL
     Route: 048
     Dates: start: 20030501
  2. ERGENYL CHRONO (TABLETS) ERGENYL CHRONO TABLETS [Concomitant]
  3. EUNERPAN (MELPERONE HYDROCHLORIDE) UNSPECIFIED [Concomitant]
  4. VOLTAREN [Concomitant]
  5. UNAT (TORASEMIDE) UNKNOWN [Concomitant]

REACTIONS (6)
  - ANOREXIA [None]
  - GENERAL PHYSICAL HEALTH DETERIORATION [None]
  - INFECTION [None]
  - MARKEDLY REDUCED DIETARY INTAKE [None]
  - PNEUMONIA [None]
  - TREMOR [None]
